FAERS Safety Report 7480665-0 (Version None)
Quarter: 2011Q2

REPORT INFORMATION
  Report Type: 
  Country: None (occurrence: None)
  Receive Date: 20110516
  Receipt Date: 20110506
  Transmission Date: 20111010
  Serious: Yes (Hospitalization)
  Sender: FDA-Public Use
  Company Number: US-US-EMD SERONO, INC.-7058567

PATIENT
  Sex: Female

DRUGS (2)
  1. REBIF [Suspect]
     Route: 058
     Dates: start: 20110506
  2. REBIF [Suspect]
     Indication: MULTIPLE SCLEROSIS
     Route: 058
     Dates: start: 20070411, end: 20110401

REACTIONS (5)
  - STAPHYLOCOCCAL INFECTION [None]
  - INJECTION SITE CELLULITIS [None]
  - MUSCULAR WEAKNESS [None]
  - TREMOR [None]
  - INJECTION SITE ABSCESS [None]
